FAERS Safety Report 14674399 (Version 2)
Quarter: 2018Q2

REPORT INFORMATION
  Report Type: Spontaneous
  Country: ES (occurrence: ES)
  Receive Date: 20180323
  Receipt Date: 20180416
  Transmission Date: 20180711
  Serious: Yes (Other)
  Sender: FDA-Public Use
  Company Number: ES-JNJFOC-20180303996

PATIENT
  Age: 35 Year
  Sex: Female
  Weight: 110 kg

DRUGS (3)
  1. IMUREL [Concomitant]
     Active Substance: AZATHIOPRINE SODIUM
     Indication: CROHN^S DISEASE
     Route: 065
  2. STELARA [Suspect]
     Active Substance: USTEKINUMAB
     Indication: CROHN^S DISEASE
     Dosage: INDUCTION PHASE, IV INFUSION OF 3 VIALS OF USTEKINUMAB 130 MG
     Route: 042
     Dates: start: 20171120, end: 2017
  3. OMEPRAZOLE. [Concomitant]
     Active Substance: OMEPRAZOLE
     Indication: CROHN^S DISEASE
     Route: 065

REACTIONS (5)
  - White blood cells urine [Unknown]
  - Vitamin B12 deficiency [Unknown]
  - Exposure during pregnancy [Not Recovered/Not Resolved]
  - Anaemia [Unknown]
  - Crohn^s disease [Unknown]

NARRATIVE: CASE EVENT DATE: 20171123
